FAERS Safety Report 9182310 (Version 1)
Quarter: 2012Q4

REPORT INFORMATION
  Report Type: 
  Country: US (occurrence: US)
  Receive Date: 20121030
  Receipt Date: 20121030
  Transmission Date: 20130627
  Serious: Yes (Death)
  Sender: FDA-Public Use
  Company Number: US-GENZYME-RENA-1001581

PATIENT
  Sex: Male

DRUGS (2)
  1. RENVELA [Suspect]
     Indication: HYPERPHOSPHATAEMIA
     Dosage: 0.8g, 1-2 tablets per day
     Route: 048
     Dates: start: 201205
  2. NEPRO [Concomitant]
     Indication: PRODUCT USED FOR UNKNOWN INDICATION
     Dosage: 3 cans per day
     Dates: start: 2012

REACTIONS (2)
  - Death [Fatal]
  - Decreased appetite [Not Recovered/Not Resolved]
